FAERS Safety Report 7779534-8 (Version None)
Quarter: 2011Q3

REPORT INFORMATION
  Report Type: 
  Country: None (occurrence: None)
  Receive Date: 20110927
  Receipt Date: 20110914
  Transmission Date: 20111222
  Serious: Yes (Hospitalization)
  Sender: FDA-Public Use
  Company Number: US-BAYER-2011-006008

PATIENT
  Age: 36 Year
  Sex: Female
  Weight: 57.143 kg

DRUGS (2)
  1. YAZ [Suspect]
     Indication: PREMENSTRUAL SYNDROME
  2. YAZ [Suspect]
     Indication: MENSTRUATION IRREGULAR
     Dosage: UNK
     Dates: start: 20070801, end: 20080205

REACTIONS (12)
  - EMOTIONAL DISTRESS [None]
  - THROMBOSIS [None]
  - DIZZINESS [None]
  - PANIC ATTACK [None]
  - FEAR OF DEATH [None]
  - PAIN IN EXTREMITY [None]
  - PALPITATIONS [None]
  - INSOMNIA [None]
  - FEELING ABNORMAL [None]
  - ANXIETY [None]
  - DYSPNOEA [None]
  - SKIN DISCOLOURATION [None]
